FAERS Safety Report 8910017 (Version 1)
Quarter: 2012Q4

REPORT INFORMATION
  Report Type: Report from Study
  Country: US (occurrence: US)
  Receive Date: 20121115
  Receipt Date: 20121115
  Transmission Date: 20130627
  Serious: Yes (Hospitalization)
  Sender: FDA-Public Use
  Company Number: US-ABBOTT-12P-163-1004761-00

PATIENT
  Age: 63 Year
  Sex: Female
  Weight: 84.9 kg

DRUGS (23)
  1. HUMIRA [Suspect]
     Indication: RHEUMATOID ARTHRITIS
     Dosage: Initial dose
     Dates: start: 20121022, end: 20121103
  2. PLAQUENIL [Suspect]
     Indication: RHEUMATOID ARTHRITIS
     Dates: end: 20121103
  3. DIOVAN [Concomitant]
     Indication: HYPERTENSION
  4. NIFEDIPINE [Concomitant]
     Indication: HYPERTENSION
  5. TOPROL [Concomitant]
     Indication: HYPERTENSION
  6. ASPIRIN [Concomitant]
     Indication: PRODUCT USED FOR UNKNOWN INDICATION
  7. NITROGLYCERIN [Concomitant]
     Indication: CHEST PAIN
  8. LEVOXYL [Concomitant]
     Indication: HYPOTHYROIDISM
     Dosage: 1/2 Tablet daily
  9. PROTONIX [Concomitant]
     Indication: GASTROOESOPHAGEAL REFLUX DISEASE
  10. FLOVENT [Concomitant]
     Indication: CHRONIC OBSTRUCTIVE PULMONARY DISEASE
  11. PRO AIRE [Concomitant]
     Indication: PRODUCT USED FOR UNKNOWN INDICATION
  12. ATROVENT [Concomitant]
     Indication: CHRONIC OBSTRUCTIVE PULMONARY DISEASE
  13. FLONASE [Concomitant]
     Indication: PRODUCT USED FOR UNKNOWN INDICATION
     Dosage: 1-2 spray into each nostril
  14. CALCIUM CARBONATE [Concomitant]
     Indication: PRODUCT USED FOR UNKNOWN INDICATION
     Dosage: 500/200MG
  15. MULTIPLE VITAMINS [Concomitant]
     Indication: PRODUCT USED FOR UNKNOWN INDICATION
  16. EPI PEN [Concomitant]
     Indication: PRODUCT USED FOR UNKNOWN INDICATION
  17. COLACE [Concomitant]
     Indication: CONSTIPATION
  18. PERIDEX [Concomitant]
     Indication: PRODUCT USED FOR UNKNOWN INDICATION
  19. NEBUMATONE [Concomitant]
     Indication: PRODUCT USED FOR UNKNOWN INDICATION
  20. MELOXICAM [Concomitant]
     Indication: RHEUMATOID ARTHRITIS
  21. PERCOCET [Concomitant]
     Indication: PAIN
     Dosage: Once every six hours as required
  22. PREDNISONE [Concomitant]
     Indication: PRODUCT USED FOR UNKNOWN INDICATION
  23. VALIUM [Concomitant]
     Indication: ANXIETY
     Dosage: 5 mg once every eight hours as required

REACTIONS (12)
  - Hyperhidrosis [Unknown]
  - Hypersensitivity [Not Recovered/Not Resolved]
  - Rash pruritic [Not Recovered/Not Resolved]
  - Drug hypersensitivity [Not Recovered/Not Resolved]
  - Nausea [Unknown]
  - Malaise [Unknown]
  - Visual impairment [Unknown]
  - Pyrexia [Unknown]
  - Scab [Unknown]
  - Dyspnoea [Unknown]
  - Headache [Unknown]
  - Cough [Unknown]
